FAERS Safety Report 7251239-1 (Version None)
Quarter: 2011Q1

REPORT INFORMATION
  Report Type: 
  Country: None (occurrence: None)
  Receive Date: 20110119
  Receipt Date: 20110106
  Transmission Date: 20110831
  Serious: Yes (Hospitalization)
  Sender: FDA-Public Use
  Company Number: 2011CP000006

PATIENT
  Age: 74 Year
  Sex: Female

DRUGS (4)
  1. MESALAMINE [Suspect]
     Dosage: 2 GM;2/1 DAY; PO
     Route: 048
     Dates: start: 20090926, end: 20091007
  2. PERFALGAN (PARACETAMOL) [Suspect]
     Dosage: 1 DOSAGE FORM; IV
     Route: 042
     Dates: start: 20090928, end: 20091008
  3. METRONIDAZOLE [Suspect]
     Dosage: 500 MG;1 DAY;
     Dates: start: 20090927, end: 20091007
  4. ESOMEPRAZOLE (ESOMEPRAZOLE) [Suspect]
     Dosage: 160 MG;1 DAY;
     Dates: start: 20091002, end: 20091007

REACTIONS (8)
  - DUODENITIS [None]
  - DUODENAL ULCER [None]
  - WEIGHT DECREASED [None]
  - INTESTINAL FUNCTIONAL DISORDER [None]
  - PANCYTOPENIA [None]
  - COLITIS ULCERATIVE [None]
  - OESOPHAGITIS ULCERATIVE [None]
  - GENERAL PHYSICAL HEALTH DETERIORATION [None]
